FAERS Safety Report 9701694 (Version 1)
Quarter: 2013Q4

REPORT INFORMATION
  Report Type: Spontaneous
  Country: US (occurrence: US)
  Receive Date: 20131119
  Receipt Date: 20131119
  Transmission Date: 20140711
  Serious: Yes (Other)
  Sender: FDA-Public Use
  Company Number: US-SAVIENT-2013S1000049

PATIENT
  Sex: Female

DRUGS (3)
  1. KRYSTEXXA [Suspect]
     Indication: PRODUCT USED FOR UNKNOWN INDICATION
     Route: 042
     Dates: start: 20130528, end: 20130528
  2. SOLU-MEDROL [Concomitant]
     Indication: ALLERGY PROPHYLAXIS
     Route: 042
  3. BENADRYL [Concomitant]
     Indication: ALLERGY PROPHYLAXIS
     Route: 042

REACTIONS (1)
  - Infusion related reaction [Unknown]
